FAERS Safety Report 10071280 (Version 2)
Quarter: 2014Q2

REPORT INFORMATION
  Report Type: Report from Study
  Country: DE (occurrence: DE)
  Receive Date: 20140410
  Receipt Date: 20140620
  Transmission Date: 20141212
  Serious: Yes (Hospitalization)
  Sender: FDA-Public Use
  Company Number: DE-ABBVIE-14P-062-1221913-00

PATIENT
  Age: 46 Year
  Sex: Female

DRUGS (2)
  1. HUMIRA [Suspect]
     Indication: CROHN^S DISEASE
     Route: 058
     Dates: start: 20121015, end: 20140106
  2. HUMIRA [Suspect]
     Route: 058
     Dates: start: 20140610

REACTIONS (2)
  - Immunosuppression [Recovering/Resolving]
  - Influenza like illness [Recovering/Resolving]
